FAERS Safety Report 5574816-2 (Version None)
Quarter: 2007Q4

REPORT INFORMATION
  Report Type: 
  Country: None (occurrence: None)
  Receive Date: 20071221
  Receipt Date: 20071221
  Transmission Date: 20080405
  Serious: Yes (Other)
  Sender: FDA-Public Use
  Company Number: None

PATIENT
  Age: 35 Year
  Sex: Male
  Weight: 73.9363 kg

DRUGS (2)
  1. CYMBALTA [Suspect]
     Indication: ANXIETY
     Dosage: 30MG 1 A DAY PO
     Route: 048
     Dates: start: 20050101, end: 20071219
  2. CYMBALTA [Suspect]
     Indication: DEPRESSION
     Dosage: 30MG 1 A DAY PO
     Route: 048
     Dates: start: 20050101, end: 20071219

REACTIONS (7)
  - ACNE [None]
  - DIZZINESS [None]
  - DRUG WITHDRAWAL SYNDROME [None]
  - GASTRIC DISORDER [None]
  - HEADACHE [None]
  - PAIN [None]
  - PARAESTHESIA [None]
